FAERS Safety Report 6290343-1 (Version None)
Quarter: 2009Q3

REPORT INFORMATION
  Report Type: 
  Country: None (occurrence: None)
  Receive Date: 20090730
  Receipt Date: 20090304
  Transmission Date: 20100115
  Serious: No
  Sender: FDA-Public Use
  Company Number: US-BRISTOL-MYERS SQUIBB COMPANY-14531974

PATIENT
  Age: 67 Year
  Sex: Female

DRUGS (2)
  1. COUMADIN [Suspect]
     Route: 048
  2. EXCEDRIN (MIGRAINE) [Suspect]
     Indication: MIGRAINE
     Route: 048
     Dates: start: 20081216, end: 20081216

REACTIONS (2)
  - FEELING ABNORMAL [None]
  - HYPOAESTHESIA [None]
